FAERS Safety Report 7741962-4 (Version None)
Quarter: 2011Q3

REPORT INFORMATION
  Report Type: 
  Country: None (occurrence: None)
  Receive Date: 20110831
  Receipt Date: 20110826
  Transmission Date: 20111222
  Serious: Yes (Life-Threatening, Hospitalization)
  Sender: FDA-Public Use
  Company Number: 2011SP001304

PATIENT
  Age: 60 Year
  Sex: Female
  Weight: 55 kg

DRUGS (11)
  1. REMERON [Suspect]
     Indication: DEPRESSION
     Dosage: 15 MG,QD,750 MG, ONCE, PO
     Route: 048
     Dates: start: 20101012, end: 20110106
  2. REMERON [Suspect]
     Indication: DEPRESSION
     Dosage: 15 MG,QD,750 MG, ONCE, PO
     Route: 048
     Dates: start: 20110107, end: 20110107
  3. ALOSENN (SENNOSIDE A,B) [Concomitant]
  4. RASILEZ (ALISKIREN FUMARATE) [Concomitant]
  5. PLAVIX [Concomitant]
  6. ROHYPNOL (FLUNITRAZEPAM) [Suspect]
     Indication: SLEEP DISORDER
     Dosage: 1 MG,QD,20 MG, ONCE, PO
     Route: 048
     Dates: start: 20101215, end: 20110106
  7. ROHYPNOL (FLUNITRAZEPAM) [Suspect]
     Indication: SLEEP DISORDER
     Dosage: 1 MG,QD,20 MG, ONCE, PO
     Route: 048
     Dates: start: 20110107, end: 20110107
  8. MICOMBI (TELMISARTAN/HYDROCHLOROTHIAZIDE)TENORMIN [Concomitant]
  9. NORVASC [Concomitant]
  10. LENDORM [Suspect]
     Indication: SLEEP DISORDER
     Dosage: 0.25 MG, QD, PO
     Route: 048
     Dates: start: 20101020, end: 20101214
  11. RESILEZ (ALISKIREN FUMARATE) [Concomitant]

REACTIONS (3)
  - SUICIDE ATTEMPT [None]
  - COMA [None]
  - BRONCHITIS [None]
